FAERS Safety Report 23986912 (Version 2)
Quarter: 2024Q2

REPORT INFORMATION
  Report Type: Spontaneous
  Country: CN (occurrence: CN)
  Receive Date: 20240618
  Receipt Date: 20240625
  Transmission Date: 20240716
  Serious: Yes (Life-Threatening, Other)
  Sender: FDA-Public Use
  Company Number: CN-SHANGHAI JUNSHI BIOSCIENCES CO., LTD.-CN2024010159

PATIENT

DRUGS (8)
  1. TORIPALIMAB [Suspect]
     Active Substance: TORIPALIMAB
     Indication: Nasal sinus cancer
     Dosage: 160 MG, ONCE EVERY 21 DAYS TO 1 MONTH
     Route: 041
     Dates: start: 20231220, end: 20231220
  2. TORIPALIMAB [Suspect]
     Active Substance: TORIPALIMAB
     Indication: Nasal sinus cancer
     Dosage: 160 MG (D1), ONCE EVERY 21 DAYS TO 1 MONTH, NO FIXED FREQUENCY
     Route: 041
     Dates: start: 20240111, end: 20240202
  3. FLUOROURACIL [Concomitant]
     Active Substance: FLUOROURACIL
     Indication: Nasal sinus cancer
     Dosage: 110 MG
     Route: 041
     Dates: start: 20231220, end: 20240520
  4. FLUOROURACIL [Concomitant]
     Active Substance: FLUOROURACIL
     Indication: Nasal sinus cancer
     Dosage: 1.1 G(D1)
     Route: 041
     Dates: end: 202405
  5. CISPLATIN [Concomitant]
     Active Substance: CISPLATIN
     Indication: Nasal sinus cancer
     Dosage: 44 MG
     Route: 041
     Dates: start: 20231220
  6. CISPLATIN [Concomitant]
     Active Substance: CISPLATIN
     Indication: Nasal sinus cancer
     Dosage: 46 MG (D1-D3)
     Route: 041
     Dates: start: 20240111, end: 20240202
  7. CISPLATIN [Concomitant]
     Active Substance: CISPLATIN
     Dosage: 46 MG (D1-D3)
     Route: 041
     Dates: end: 202405
  8. PACLITAXEL [Concomitant]
     Active Substance: PACLITAXEL
     Indication: Nasal sinus cancer
     Dosage: 200 MG (D4)
     Dates: start: 20231220, end: 20240520

REACTIONS (6)
  - Infusion related reaction [Recovered/Resolved]
  - Syncope [Recovered/Resolved]
  - Abdominal pain [Recovered/Resolved]
  - Nausea [Recovered/Resolved]
  - Vomiting [Recovered/Resolved]
  - Off label use [Unknown]

NARRATIVE: CASE EVENT DATE: 20231220
